FAERS Safety Report 25925427 (Version 1)
Quarter: 2025Q4

REPORT INFORMATION
  Report Type: Report from Study
  Country: US (occurrence: US)
  Receive Date: 20251015
  Receipt Date: 20251015
  Transmission Date: 20260119
  Serious: No
  Sender: MALLINCKRODT
  Company Number: US-MALLINCKRODT-MNK202506350

PATIENT
  Sex: Female

DRUGS (5)
  1. CORTICOTROPIN [Suspect]
     Active Substance: CORTICOTROPIN
     Indication: Dermatomyositis
     Dosage: UNKNOWN
  2. CORTICOTROPIN [Suspect]
     Active Substance: CORTICOTROPIN
     Indication: Dermatomyositis
     Dosage: 80 UNITS
  3. CORTICOTROPIN [Suspect]
     Active Substance: CORTICOTROPIN
     Indication: Dermatomyositis
  4. CORTICOTROPIN [Suspect]
     Active Substance: CORTICOTROPIN
     Indication: Pericarditis lupus
  5. CORTICOTROPIN [Suspect]
     Active Substance: CORTICOTROPIN
     Indication: Pericarditis lupus

REACTIONS (3)
  - Glycosylated haemoglobin increased [Unknown]
  - Blood pressure increased [Unknown]
  - Weight increased [Unknown]
